FAERS Safety Report 5359533-6 (Version None)
Quarter: 2007Q2

REPORT INFORMATION
  Report Type: 
  Country: None (occurrence: None)
  Receive Date: 20070615
  Receipt Date: 20070604
  Transmission Date: 20071010
  Serious: Yes (Other)
  Sender: FDA-Public Use
  Company Number: BR-PFIZER INC-2007047140

PATIENT

DRUGS (1)
  1. SUTENT [Suspect]

REACTIONS (2)
  - GALLBLADDER NECROSIS [None]
  - NECROSIS [None]
